FAERS Safety Report 21282071 (Version 1)
Quarter: 2022Q3

REPORT INFORMATION
  Report Type: Spontaneous
  Country: US (occurrence: US)
  Receive Date: 20220901
  Receipt Date: 20220901
  Transmission Date: 20221026
  Serious: No
  Sender: FDA-Public Use
  Company Number: US-ABBVIE-22K-163-4462383-00

PATIENT
  Sex: Male

DRUGS (2)
  1. HUMIRA [Suspect]
     Active Substance: ADALIMUMAB
     Indication: Product used for unknown indication
     Route: 058
  2. HUMIRA [Suspect]
     Active Substance: ADALIMUMAB
     Dosage: 2 PENS
     Route: 058
     Dates: start: 20220706

REACTIONS (10)
  - Wrong technique in product usage process [Not Recovered/Not Resolved]
  - Incorrect dose administered [Not Recovered/Not Resolved]
  - Injection site extravasation [Unknown]
  - Colitis [Unknown]
  - Injection site nodule [Unknown]
  - Injection site erythema [Unknown]
  - Injection site haemorrhage [Unknown]
  - Injection site pruritus [Not Recovered/Not Resolved]
  - Diarrhoea [Unknown]
  - Injection site pain [Unknown]

NARRATIVE: CASE EVENT DATE: 20220101
